FAERS Safety Report 5363470-0 (Version None)
Quarter: 2007Q2

REPORT INFORMATION
  Report Type: 
  Country: None (occurrence: None)
  Receive Date: 20070620
  Receipt Date: 20070608
  Transmission Date: 20071010
  Serious: Yes (Hospitalization)
  Sender: FDA-Public Use
  Company Number: GB-ROCHE-502110

PATIENT
  Age: 52 Year
  Sex: Female
  Weight: 83.4 kg

DRUGS (2)
  1. XENICAL [Suspect]
     Indication: OBESITY
     Route: 048
     Dates: start: 20070502, end: 20070517
  2. UNSPECIFIED DRUG [Concomitant]
     Indication: ASTHMA
     Route: 055

REACTIONS (1)
  - PULMONARY THROMBOSIS [None]
